FAERS Safety Report 8012876-X (Version None)
Quarter: 2011Q4

REPORT INFORMATION
  Report Type: 
  Country: None (occurrence: None)
  Receive Date: 20111229
  Receipt Date: 20111220
  Transmission Date: 20120403
  Serious: Yes (Hospitalization)
  Sender: FDA-Public Use
  Company Number: US-JNJFOC-20111206623

PATIENT
  Sex: Female
  Weight: 58.6 kg

DRUGS (40)
  1. DEXTROSE+NACL+KCL [Concomitant]
  2. ROCURONIUM BROMIDE [Concomitant]
  3. BENTYL [Concomitant]
  4. AZITHROMYCIN [Concomitant]
  5. AMOXICILLIN [Concomitant]
  6. SIMETHICONE [Concomitant]
  7. ZYDONE [Concomitant]
  8. BENADRYL [Concomitant]
  9. 5% DEXTROSE IN 0.45% NORMAL SALINE [Concomitant]
  10. DEXAMETHASONE [Concomitant]
  11. ATIVAN [Concomitant]
  12. ISOFLURANE [Concomitant]
  13. ERTAPENEM [Concomitant]
  14. HEPARIN [Suspect]
     Indication: PRODUCT USED FOR UNKNOWN INDICATION
  15. ONDANSETRON [Concomitant]
  16. TRIMETHOPRIM [Concomitant]
  17. MIDAZOLAM [Concomitant]
  18. POTASSIUM CHLORIDE [Concomitant]
  19. VOLUVEN [Concomitant]
  20. GLYCOPYRROLATE [Concomitant]
  21. HYOSCYAMINE [Concomitant]
  22. ACETAMINOPHEN [Concomitant]
  23. SCOPOLAMINE [Concomitant]
  24. FLOMAX [Concomitant]
  25. LIDOCAINE [Concomitant]
  26. PROMETHAZINE [Concomitant]
  27. MAGNESIUM OXIDE [Concomitant]
  28. LACTATED RINGER'S [Concomitant]
  29. FENTANYL [Concomitant]
  30. VITAMIN D [Concomitant]
  31. SODIUM CHLORIDE [Concomitant]
  32. DEXMEDETOMIDINE HYDROCHLORIDE [Concomitant]
  33. NEOSTIGMINE [Concomitant]
  34. PHENYLEPHRINE HCL [Concomitant]
  35. BUPIVACAINE HCL [Concomitant]
  36. HYDROMORPHONE HCL [Concomitant]
  37. OXYCODONE HCL [Concomitant]
  38. IMODIUM [Concomitant]
  39. PROPOFOL [Concomitant]
  40. INFLIXIMAB, RECOMBINANT [Suspect]
     Indication: COLITIS ULCERATIVE
     Route: 042
     Dates: start: 20110902

REACTIONS (2)
  - COLITIS ULCERATIVE [None]
  - GASTROINTESTINAL HAEMORRHAGE [None]
